FAERS Safety Report 9492389 (Version 1)
Quarter: 2013Q3

REPORT INFORMATION
  Report Type: Spontaneous
  Country: US (occurrence: US)
  Receive Date: 20130830
  Receipt Date: 20130830
  Transmission Date: 20140515
  Serious: Yes (Death, Disabling, Other)
  Sender: FDA-Public Use
  Company Number: US-MERCK-1308USA014457

PATIENT
  Sex: Female

DRUGS (1)
  1. JANUMET [Suspect]
     Indication: TYPE 2 DIABETES MELLITUS
     Dosage: UNK
     Route: 048
     Dates: start: 20080101, end: 20110531

REACTIONS (1)
  - Pancreatic carcinoma [Fatal]
